FAERS Safety Report 10648624 (Version 1)
Quarter: 2014Q4

REPORT INFORMATION
  Report Type: Spontaneous
  Country: US (occurrence: None)
  Receive Date: 20141205
  Receipt Date: 20141205
  Transmission Date: 20150529
  Serious: No
  Sender: FDA-Public Use
  Company Number: USA-2014094963

PATIENT
  Age: 70 Year
  Sex: Female

DRUGS (1)
  1. POMALYST [Suspect]
     Active Substance: POMALIDOMIDE
     Indication: PLASMA CELL MYELOMA
     Dosage: 4 MG, 1 IN 1 D, PO
     Route: 048
     Dates: start: 20140905

REACTIONS (9)
  - Neuropathy peripheral [None]
  - Confusional state [None]
  - Nausea [None]
  - Photophobia [None]
  - Back pain [None]
  - Diarrhoea [None]
  - Disturbance in attention [None]
  - Dizziness [None]
  - Constipation [None]

NARRATIVE: CASE EVENT DATE: 20140910
